FAERS Safety Report 7892590-1 (Version None)
Quarter: 2011Q4

REPORT INFORMATION
  Report Type: 
  Country: None (occurrence: None)
  Receive Date: 20111102
  Receipt Date: 20111017
  Transmission Date: 20120403
  Serious: Yes (Other)
  Sender: FDA-Public Use
  Company Number: 1000024984

PATIENT
  Age: 25 Year
  Sex: Female

DRUGS (3)
  1. CANNABIS (CANNABIS SATIVA) [Suspect]
  2. VENLAFAXINE [Suspect]
  3. CITALOPRAM HYDROBROMIDE [Suspect]

REACTIONS (4)
  - SUICIDE ATTEMPT [None]
  - AGGRESSION [None]
  - AKATHISIA [None]
  - ALTERED STATE OF CONSCIOUSNESS [None]
